FAERS Safety Report 4686796-2 (Version None)
Quarter: 2005Q2

REPORT INFORMATION
  Report Type: 
  Country: None (occurrence: None)
  Receive Date: 20050608
  Receipt Date: 20050523
  Transmission Date: 20051028
  Serious: Yes (Death, Hospitalization, Other)
  Sender: FDA-Public Use
  Company Number: 2005-05-2258

PATIENT
  Age: 71 Year
  Sex: Male

DRUGS (8)
  1. SALBUTAMOL SULPHATE ORAL AEROSOL [Suspect]
     Dosage: 100MCG PRN ORAL AER INH
     Route: 055
  2. BECLOMETHASONE DIPROPIONATE [Suspect]
     Dosage: 200MCG PRN INHALATION
     Route: 055
  3. TIOTROPIUM BROMIDE INHALATION SOLUTION [Suspect]
     Dosage: 18 MCG INHALATION
     Route: 055
  4. MONTELUKAST SODIUM [Suspect]
     Dosage: 10MG HS ORAL
     Route: 048
  5. OXYGEN [Suspect]
     Dosage: 2L/MIN INHALATION
     Route: 055
  6. QUININE BISULFATE [Suspect]
     Dosage: 300MG/NIGHT ORAL
     Route: 048
  7. SALMETEROL XINAFOATE [Suspect]
     Dosage: 25MCG INHALATION
     Route: 055
  8. SERETIDE (SALMETEROL XINAFOATE/FLUTICASONE PROPIONATE) [Suspect]
     Dosage: 500MCG QD INHALATION
     Route: 055

REACTIONS (2)
  - CHRONIC OBSTRUCTIVE PULMONARY DISEASE [None]
  - DIARRHOEA [None]
